FAERS Safety Report 4301481-4 (Version None)
Quarter: 2004Q1

REPORT INFORMATION
  Report Type: 
  Country: None (occurrence: None)
  Receive Date: 20040219
  Receipt Date: 20040209
  Transmission Date: 20041129
  Serious: Yes (Hospitalization)
  Sender: FDA-Public Use
  Company Number: NL-JNJFOC-20040201937

PATIENT
  Age: 59 Year
  Sex: Male

DRUGS (6)
  1. REMICADE [Suspect]
     Indication: ANKYLOSING SPONDYLITIS
     Dosage: INTRAVENOUS
     Route: 042
     Dates: start: 20030814, end: 20030814
  2. ATENOLOLUM (ATENOLOL) TABLETS [Concomitant]
  3. ZESTRIL [Concomitant]
  4. NORVASC [Concomitant]
  5. HYDROCHLOROTHIAZIDUM (HYDROCHLOROTHIAZIDE) TABLETS [Concomitant]
  6. ISONIAZIDUM (ISONIAZID) [Concomitant]

REACTIONS (3)
  - COUGH [None]
  - DYSPNOEA [None]
  - PULMONARY FUNCTION TEST DECREASED [None]
